FAERS Safety Report 17172204 (Version 1)
Quarter: 2019Q4

REPORT INFORMATION
  Report Type: Spontaneous
  Country: US (occurrence: US)
  Receive Date: 20191218
  Receipt Date: 20191218
  Transmission Date: 20200122
  Serious: Yes (Other)
  Sender: FDA-Public Use
  Company Number: US-PURDUE-USA-2019-0149390

PATIENT
  Age: 70 Year
  Sex: Male

DRUGS (3)
  1. HYSINGLA ER [Suspect]
     Active Substance: HYDROCODONE BITARTRATE
     Indication: PRODUCT USED FOR UNKNOWN INDICATION
     Route: 048
  2. SILDENAFIL CITRATE. [Concomitant]
     Active Substance: SILDENAFIL CITRATE
     Indication: PRODUCT USED FOR UNKNOWN INDICATION
     Route: 048
  3. OMEPRAZOLE. [Concomitant]
     Active Substance: OMEPRAZOLE
     Indication: PRODUCT USED FOR UNKNOWN INDICATION
     Route: 048

REACTIONS (15)
  - Dyspnoea exertional [Unknown]
  - Dyspnoea [Unknown]
  - Decreased appetite [Unknown]
  - Respiratory tract congestion [Unknown]
  - Diarrhoea [Unknown]
  - Productive cough [Unknown]
  - Heart rate increased [Unknown]
  - Depressed mood [Unknown]
  - Blood pressure increased [Unknown]
  - Cough [Unknown]
  - Shoulder arthroplasty [Unknown]
  - Memory impairment [Unknown]
  - Soliloquy [Unknown]
  - Oxygen consumption decreased [Unknown]
  - Weight decreased [Unknown]
